FAERS Safety Report 6001125-X (Version None)
Quarter: 2008Q4

REPORT INFORMATION
  Report Type: 
  Country: None (occurrence: None)
  Receive Date: 20081215
  Receipt Date: 20071128
  Transmission Date: 20090506
  Serious: No
  Sender: FDA-Public Use
  Company Number: US-AMGEN-KDL246751

PATIENT
  Sex: Female
  Weight: 128.9 kg

DRUGS (7)
  1. ENBREL [Suspect]
     Indication: RHEUMATOID ARTHRITIS
     Route: 058
     Dates: start: 20070905, end: 20071101
  2. SYNTHROID [Concomitant]
  3. DIOVAN [Concomitant]
  4. DYAZIDE [Concomitant]
  5. PREVACID [Concomitant]
  6. MAXALT [Concomitant]
  7. LORTAB [Concomitant]

REACTIONS (6)
  - CONJUNCTIVITIS INFECTIVE [None]
  - DIARRHOEA [None]
  - HEADACHE [None]
  - INFLUENZA LIKE ILLNESS [None]
  - PAIN [None]
  - VOMITING [None]
